FAERS Safety Report 18415878 (Version 1)
Quarter: 2020Q4

REPORT INFORMATION
  Report Type: Spontaneous
  Country: JP (occurrence: JP)
  Receive Date: 20201022
  Receipt Date: 20201022
  Transmission Date: 20210114
  Serious: Yes (Other)
  Sender: FDA-Public Use
  Company Number: JP-FRESENIUS KABI-FK202011009

PATIENT
  Age: 2 Month
  Sex: Male

DRUGS (2)
  1. FOLIC ACID (MANUFACTURER UNKNOWN) [Suspect]
     Active Substance: FOLIC ACID
     Indication: BLOOD FOLATE DECREASED
     Route: 042
  2. FOLIC ACID (MANUFACTURER UNKNOWN) [Suspect]
     Active Substance: FOLIC ACID
     Route: 042

REACTIONS (3)
  - Pneumonia [Recovered/Resolved]
  - Pulmonary hypertension [Recovered/Resolved]
  - Paradoxical drug reaction [Recovered/Resolved]
